FAERS Safety Report 25550562 (Version 3)
Quarter: 2025Q4

REPORT INFORMATION
  Report Type: Spontaneous
  Country: US (occurrence: US)
  Receive Date: 20250714
  Receipt Date: 20251208
  Transmission Date: 20260117
  Serious: No
  Sender: SANOFI AVENTIS
  Company Number: US-SA-2025SA197093

PATIENT
  Sex: Female

DRUGS (1)
  1. DUPIXENT [Suspect]
     Active Substance: DUPILUMAB
     Indication: Asthma
     Dosage: 300 MG, QOW
     Route: 058
     Dates: start: 202307

REACTIONS (4)
  - Cough [Recovered/Resolved]
  - Influenza [Recovered/Resolved]
  - Sinusitis [Recovered/Resolved]
  - Upper respiratory tract infection [Unknown]
